FAERS Safety Report 5275802-2 (Version None)
Quarter: 2007Q1

REPORT INFORMATION
  Report Type: 
  Country: None (occurrence: None)
  Receive Date: 20070326
  Receipt Date: 20070316
  Transmission Date: 20070707
  Serious: Yes (Other)
  Sender: FDA-Public Use
  Company Number: CN-GLAXOSMITHKLINE-B0463229A

PATIENT
  Sex: Male

DRUGS (2)
  1. HEPTODIN [Suspect]
     Route: 065
     Dates: start: 20031001, end: 20051001
  2. HEPSERA [Suspect]
     Dosage: 10MG PER DAY
     Route: 048

REACTIONS (3)
  - ALANINE AMINOTRANSFERASE INCREASED [None]
  - ASPARTATE AMINOTRANSFERASE INCREASED [None]
  - HEPATITIS B [None]
